FAERS Safety Report 8210999-3 (Version None)
Quarter: 2012Q1

REPORT INFORMATION
  Report Type: 
  Country: None (occurrence: None)
  Receive Date: 20120315
  Receipt Date: 20120306
  Transmission Date: 20120608
  Serious: Yes (Hospitalization, Other)
  Sender: FDA-Public Use
  Company Number: PHEH2008US09309

PATIENT
  Sex: Male
  Weight: 111.11 kg

DRUGS (82)
  1. VELCADE [Concomitant]
  2. NEUPOGEN [Concomitant]
     Dosage: 480 UG, UNK
  3. SUCRALFATE [Concomitant]
  4. FLAGYL [Concomitant]
  5. DOXIL [Concomitant]
  6. DEXAMETHASONE [Concomitant]
  7. MORPHINE SULFATE [Concomitant]
  8. PROCHLORPERAZINE [Concomitant]
  9. DURAGESIC-100 [Concomitant]
  10. MORPHINE [Concomitant]
  11. DECADRON [Concomitant]
     Dosage: 40 MG, UNK
  12. ARANESP [Concomitant]
  13. SENOKOT                                 /UNK/ [Concomitant]
  14. AVELOX [Concomitant]
  15. OXYCODONE HCL [Concomitant]
  16. REGLAN [Concomitant]
  17. PROTONIX [Concomitant]
  18. GUAIFENEX [Concomitant]
  19. LISINOPRIL [Concomitant]
  20. VANCOCIN HYDROCHLORIDE [Concomitant]
  21. CETACAINE [Concomitant]
  22. METHADONE HCL [Concomitant]
     Dosage: 40 MG, Q8H
     Route: 048
     Dates: start: 20060206, end: 20090218
  23. PERCOCET [Concomitant]
     Dosage: 3/325 MG, UNK
     Route: 048
  24. LORTAB [Concomitant]
  25. UNASYN [Concomitant]
  26. SOLU-MEDROL [Concomitant]
  27. PROTONIX [Concomitant]
     Dosage: 40 MG, UNK
  28. PRILOSEC [Concomitant]
     Dosage: 20 MG, QD
     Route: 048
  29. LOTREL [Concomitant]
     Dosage: 520 MG, QD
     Route: 048
  30. MAALOX                                  /NET/ [Concomitant]
     Dosage: 1 DF, UNK
     Dates: start: 20060206, end: 20090217
  31. LIDOCAINE [Concomitant]
     Dosage: UNK
  32. DARVOCET-N 50 [Concomitant]
  33. VISICOL [Concomitant]
  34. LEVAQUIN [Concomitant]
  35. NORVASC [Concomitant]
  36. AREDIA [Suspect]
     Indication: MULTIPLE MYELOMA
     Dosage: 90 MG, UNK
     Route: 042
     Dates: start: 19980114, end: 20020522
  37. VIOXX [Concomitant]
  38. PHENERGAN [Concomitant]
     Dosage: 25MG
     Route: 054
  39. PREDNISONE [Concomitant]
     Dosage: 20 MG, TID
  40. TETRACYCLINE [Concomitant]
     Dosage: 250 MG, UNK
  41. LASIX [Concomitant]
     Dosage: UNK
  42. SULFAMETHOXAZOLE [Concomitant]
  43. ACYCLOVIR [Concomitant]
  44. MARINOL [Concomitant]
  45. VERSED [Concomitant]
  46. ROXICODONE [Concomitant]
  47. OXYCONTIN [Concomitant]
  48. AMBIEN [Concomitant]
  49. VIAGRA [Concomitant]
  50. CELESTONE                               /NET/ [Concomitant]
  51. DILAUDID [Concomitant]
  52. CLINDAMYCIN [Concomitant]
  53. PENICILLIN VK [Concomitant]
  54. HYDROMORPHONE HCL [Concomitant]
  55. CARISOPRODOL [Concomitant]
  56. WARFARIN SODIUM [Concomitant]
  57. CARAFATE [Concomitant]
  58. COUMADIN [Concomitant]
     Dosage: 5MG ALTERNATE 7.5MG EVERY OTHER DAY
     Route: 048
  59. SYNTHROID [Concomitant]
     Dosage: 50 MCQ, QD
     Route: 048
  60. NEXIUM [Concomitant]
     Dosage: 40 MG, QD
     Dates: start: 20060206, end: 20090217
  61. MIRALAX [Concomitant]
  62. LOVENOX [Concomitant]
  63. ZOMETA [Suspect]
     Indication: MULTIPLE MYELOMA
     Dosage: 4 MG, UNK
     Route: 042
     Dates: start: 20020619, end: 20050222
  64. CELEBREX [Concomitant]
  65. BUTALBITAL ACETAMINOPHEN AND CAFFEINE [Concomitant]
  66. PHENERGAN [Concomitant]
     Dosage: 25 MG, UNK
     Route: 048
  67. REGLAN [Concomitant]
  68. OMNIPAQUE ^ADCOCK INGRAM^ [Concomitant]
     Dosage: UNK
  69. OMEPRAZOLE [Concomitant]
  70. ARMODAFINIL [Concomitant]
  71. RESTORIL [Concomitant]
  72. ZOFRAN [Concomitant]
  73. MELPHALAN HYDROCHLORIDE [Concomitant]
     Dosage: 14 MG, DAILY FOR SEVEN DAYS
  74. LOVASTATIN [Concomitant]
  75. VINCRISTINE [Concomitant]
  76. FLEXERIL [Concomitant]
  77. MOBIC [Concomitant]
  78. DECADRON [Concomitant]
  79. PROMETHAZINE [Concomitant]
  80. BIAXIN [Concomitant]
  81. BACTRIM DS [Concomitant]
  82. MIDRIN [Concomitant]

REACTIONS (75)
  - GASTROINTESTINAL HAEMORRHAGE [None]
  - BONE DISORDER [None]
  - ANHEDONIA [None]
  - TENDERNESS [None]
  - ARTHRITIS [None]
  - PARAESTHESIA [None]
  - EPICONDYLITIS [None]
  - CALCULUS URETERIC [None]
  - SOFT TISSUE DISORDER [None]
  - HEADACHE [None]
  - ANAEMIA [None]
  - GASTROOESOPHAGEAL REFLUX DISEASE [None]
  - DENTAL CARIES [None]
  - CELLULITIS [None]
  - DEAFNESS [None]
  - BLOOD PRESSURE INCREASED [None]
  - FAILURE TO THRIVE [None]
  - COSTOCHONDRITIS [None]
  - OBESITY [None]
  - TEETH BRITTLE [None]
  - PYREXIA [None]
  - GASTRITIS EROSIVE [None]
  - OSTEOMYELITIS [None]
  - LUNG INFILTRATION [None]
  - KYPHOSIS [None]
  - NAUSEA [None]
  - GASTRIC MUCOSAL HYPERTROPHY [None]
  - INFLAMMATION [None]
  - PAIN IN JAW [None]
  - RENAL ATROPHY [None]
  - PLEURAL EFFUSION [None]
  - OSTEOARTHRITIS [None]
  - LYMPHOEDEMA [None]
  - ASTHENIA [None]
  - TOOTH EROSION [None]
  - LOOSE TOOTH [None]
  - BREAST MASS [None]
  - ERYTHEMA [None]
  - MULTIPLE MYELOMA [None]
  - CLOSTRIDIUM DIFFICILE COLITIS [None]
  - DIZZINESS [None]
  - DYSPEPSIA [None]
  - HYPOTENSION [None]
  - MONOCLONAL GAMMOPATHY [None]
  - HIATUS HERNIA [None]
  - DEEP VEIN THROMBOSIS [None]
  - ANXIETY [None]
  - METASTATIC NEOPLASM [None]
  - HEPATIC CYST [None]
  - OEDEMA [None]
  - HEPATITIS [None]
  - RENAL DISORDER [None]
  - GYNAECOMASTIA [None]
  - FAT NECROSIS [None]
  - MOUNTAIN SICKNESS ACUTE [None]
  - THROMBOCYTOPENIA [None]
  - ABDOMINAL PAIN [None]
  - FIBROSIS [None]
  - INJURY [None]
  - DISABILITY [None]
  - BLINDNESS [None]
  - EXOSTOSIS [None]
  - OSTEOPOROSIS [None]
  - BACK PAIN [None]
  - PAIN [None]
  - VOMITING [None]
  - COMPRESSION FRACTURE [None]
  - RIB FRACTURE [None]
  - OSTEONECROSIS OF JAW [None]
  - INFECTION [None]
  - SPINAL CORD COMPRESSION [None]
  - GINGIVAL INFECTION [None]
  - SKIN EROSION [None]
  - SCOLIOSIS [None]
  - GASTRIC ULCER [None]
